FAERS Safety Report 11918326 (Version 1)
Quarter: 2016Q1

REPORT INFORMATION
  Report Type: Other
  Country: DE (occurrence: DE)
  Receive Date: 20160115
  Receipt Date: 20160115
  Transmission Date: 20160526
  Serious: No
  Sender: FDA-Public Use
  Company Number: DE-LUPIN PHARMACEUTICALS INC.-E2B_00004306

PATIENT
  Sex: Male

DRUGS (4)
  1. LAMOTRIGIN [Suspect]
     Active Substance: LAMOTRIGINE
     Dosage: DOSE REDUCED
     Route: 065
  2. LAMOTRIGIN [Suspect]
     Active Substance: LAMOTRIGINE
     Dosage: DOSE REDUCED
     Route: 065
  3. LAMOTRIGIN [Suspect]
     Active Substance: LAMOTRIGINE
     Indication: PRODUCT USED FOR UNKNOWN INDICATION
     Route: 065
  4. LEVETIRACETAM. [Concomitant]
     Active Substance: LEVETIRACETAM
     Indication: PRODUCT USED FOR UNKNOWN INDICATION
     Route: 065

REACTIONS (20)
  - Influenza like illness [Recovering/Resolving]
  - Dysphagia [Recovering/Resolving]
  - Irritability [Recovering/Resolving]
  - Eye pruritus [Recovering/Resolving]
  - Salivary hypersecretion [Recovering/Resolving]
  - Back pain [Recovering/Resolving]
  - Pruritus [Recovering/Resolving]
  - Skin haemorrhage [Recovering/Resolving]
  - Headache [Recovering/Resolving]
  - Dizziness [Recovering/Resolving]
  - Aggression [Recovering/Resolving]
  - Nuchal rigidity [Recovering/Resolving]
  - Arthralgia [Recovering/Resolving]
  - Diarrhoea [Recovering/Resolving]
  - Fatigue [Recovering/Resolving]
  - Tremor [Recovering/Resolving]
  - Pharyngitis [Recovering/Resolving]
  - Cough [Recovering/Resolving]
  - Blepharitis [Recovering/Resolving]
  - Photosensitivity reaction [Recovering/Resolving]
